FAERS Safety Report 6714478-1 (Version None)
Quarter: 2010Q2

REPORT INFORMATION
  Report Type: 
  Country: None (occurrence: None)
  Receive Date: 20100506
  Receipt Date: 20100429
  Transmission Date: 20101027
  Serious: Yes (Hospitalization)
  Sender: FDA-Public Use
  Company Number: GB-AMGEN-QUU403877

PATIENT
  Age: 41 Year
  Sex: Female

DRUGS (6)
  1. FILGRASTIM [Suspect]
     Indication: CHEMOTHERAPY
  2. CYTARABINE [Suspect]
  3. DASATINIB [Suspect]
     Dates: start: 20100111, end: 20100129
  4. FLUDARABINE PHOSPHATE [Suspect]
  5. IDARUBICIN HCL [Suspect]
  6. IMATINIB MESYLATE [Concomitant]

REACTIONS (3)
  - FEBRILE NEUTROPENIA [None]
  - PULMONARY MASS [None]
  - RASH [None]
